FAERS Safety Report 20165322 (Version 11)
Quarter: 2025Q4

REPORT INFORMATION
  Report Type: Report from Study
  Country: US (occurrence: US)
  Receive Date: 20211209
  Receipt Date: 20251217
  Transmission Date: 20260118
  Serious: Yes (Other)
  Sender: PFIZER
  Company Number: US-PFIZER INC-202101664085

PATIENT
  Age: 68 Year
  Sex: Female

DRUGS (1)
  1. PREMARIN [Suspect]
     Active Substance: ESTROGENS, CONJUGATED
     Dosage: UNK

REACTIONS (9)
  - Vaginal disorder [Unknown]
  - Pelvic floor dysfunction [Unknown]
  - Impaired healing [Unknown]
  - Mental impairment [Unknown]
  - Illness [Not Recovered/Not Resolved]
  - Cystitis [Unknown]
  - Stress [Unknown]
  - Malaise [Unknown]
  - Therapeutic response unexpected [Unknown]
